FAERS Safety Report 16303196 (Version 1)
Quarter: 2019Q2

REPORT INFORMATION
  Report Type: Spontaneous
  Country: US (occurrence: US)
  Receive Date: 20190513
  Receipt Date: 20190513
  Transmission Date: 20190711
  Serious: No
  Sender: FDA-Public Use
  Company Number: US-AUROBINDO-AUR-APL-2019-011574

PATIENT

DRUGS (2)
  1. ROSUVASTATIN CALCIUM TABLET 20 MG [Suspect]
     Active Substance: ROSUVASTATIN CALCIUM
     Indication: BLOOD CHOLESTEROL
     Dosage: 1 DOSAGE FORM, DAILY (1 TABLET PER DAY)
     Route: 065
     Dates: start: 20181205, end: 20190216
  2. ROSUVASTATIN CALCIUM TABLET 20 MG [Suspect]
     Active Substance: ROSUVASTATIN CALCIUM
     Indication: CARDIAC DISORDER

REACTIONS (2)
  - Product substitution issue [Unknown]
  - Flatulence [Recovering/Resolving]

NARRATIVE: CASE EVENT DATE: 20181205
